FAERS Safety Report 9245517 (Version 2)
Quarter: 2013Q2

REPORT INFORMATION
  Report Type: Spontaneous
  Country: JP (occurrence: JP)
  Receive Date: 20130422
  Receipt Date: 20130430
  Transmission Date: 20140414
  Serious: Yes (Death)
  Sender: FDA-Public Use
  Company Number: JP-ASTELLAS-2013US004178

PATIENT
  Age: 60 Year
  Sex: Male

DRUGS (4)
  1. AMBISOME [Suspect]
     Indication: ASPERGILLUS INFECTION
     Dosage: UNK
     Route: 041
  2. AMBISOME [Suspect]
     Indication: INFECTIVE SPONDYLITIS
  3. MICAFUNGIN [Concomitant]
     Indication: PRODUCT USED FOR UNKNOWN INDICATION
     Dosage: UNK
     Route: 065
  4. VORICONAZOLE [Concomitant]
     Indication: BRONCHOPULMONARY ASPERGILLOSIS
     Dosage: UNK
     Route: 065

REACTIONS (1)
  - Gastrointestinal haemorrhage [Fatal]
